FAERS Safety Report 5208650-X (Version None)
Quarter: 2007Q1

REPORT INFORMATION
  Report Type: 
  Country: None (occurrence: None)
  Receive Date: 20070116
  Receipt Date: 20070103
  Transmission Date: 20070707
  Serious: Yes (Other)
  Sender: FDA-Public Use
  Company Number: PHBS2006AR19797

PATIENT
  Age: 48 Year
  Sex: Male
  Weight: 73.3 kg

DRUGS (6)
  1. MELERIL RETARD [Suspect]
     Dosage: 200 MG, BID
     Route: 048
  2. MELERIL RETARD [Suspect]
     Dosage: 300 MG/D
     Route: 048
  3. RIVOTRIL [Concomitant]
     Dosage: 1.25 TABLET/D
     Route: 048
  4. DEBRIDAT FORT [Concomitant]
     Route: 065
  5. FACTOR AG [Concomitant]
     Route: 065
  6. TEGRETOL 400 LC [Suspect]
     Indication: CONVULSION
     Dosage: 600 MG/D
     Route: 048

REACTIONS (3)
  - ATHETOSIS [None]
  - CONVULSION [None]
  - MUSCULAR WEAKNESS [None]
